FAERS Safety Report 15810281 (Version 1)
Quarter: 2019Q1

REPORT INFORMATION
  Report Type: Spontaneous
  Country: US (occurrence: US)
  Receive Date: 20190111
  Receipt Date: 20190111
  Transmission Date: 20190417
  Serious: No
  Sender: FDA-Public Use
  Company Number: US-ROCHE-2159011

PATIENT
  Sex: Male

DRUGS (1)
  1. RITUXAN [Suspect]
     Active Substance: RITUXIMAB
     Indication: LYMPHOMA
     Route: 065
     Dates: start: 2016

REACTIONS (5)
  - Fatigue [Unknown]
  - Nasopharyngitis [Unknown]
  - Cough [Unknown]
  - Asthenia [Unknown]
  - Pyrexia [Unknown]
